FAERS Safety Report 14987626 (Version 3)
Quarter: 2018Q3

REPORT INFORMATION
  Report Type: Spontaneous
  Country: FR (occurrence: FR)
  Receive Date: 20180608
  Receipt Date: 20180730
  Transmission Date: 20181010
  Serious: Yes (Hospitalization)
  Sender: FDA-Public Use
  Company Number: PHHY2018FR014089

PATIENT
  Age: 46 Year
  Sex: Male
  Weight: 71 kg

DRUGS (4)
  1. CIFLOX [Suspect]
     Active Substance: CIPROFLOXACIN
     Indication: PRODUCT USED FOR UNKNOWN INDICATION
     Dosage: 1000 MG, QD
     Route: 048
     Dates: start: 20180204, end: 20180205
  2. TAZOCILLINE [Suspect]
     Active Substance: PIPERACILLIN SODIUM\TAZOBACTAM SODIUM
     Indication: PRODUCT USED FOR UNKNOWN INDICATION
     Dosage: 16 G, QD
     Route: 042
     Dates: start: 20180209, end: 20180216
  3. RIAMET [Suspect]
     Active Substance: ARTEMETHER\LUMEFANTRINE
     Indication: MALARIA
     Dosage: 2 OT, QD
     Route: 048
     Dates: start: 20180207, end: 20180210
  4. MALACEF [Suspect]
     Active Substance: ARTESUNATE
     Indication: MALARIA
     Dosage: 180 MG, QD
     Route: 042
     Dates: start: 20180204, end: 20180206

REACTIONS (2)
  - Coombs positive haemolytic anaemia [Recovering/Resolving]
  - Pancytopenia [Recovering/Resolving]

NARRATIVE: CASE EVENT DATE: 201802
